FAERS Safety Report 6855223-9 (Version None)
Quarter: 2010Q3

REPORT INFORMATION
  Report Type: 
  Country: None (occurrence: None)
  Receive Date: 20100719
  Receipt Date: 20100708
  Transmission Date: 20110219
  Serious: Yes (Hospitalization)
  Sender: FDA-Public Use
  Company Number: US-BIOGENIDEC-2009BI042254

PATIENT
  Age: 62 Year
  Sex: Female

DRUGS (1)
  1. TYSABRI [Suspect]
     Indication: MULTIPLE SCLEROSIS
     Route: 042
     Dates: start: 20090819

REACTIONS (8)
  - BEDRIDDEN [None]
  - FAECAL INCONTINENCE [None]
  - MALAISE [None]
  - MEMORY IMPAIRMENT [None]
  - MUSCLE SPASMS [None]
  - THROMBOSIS [None]
  - ULCER HAEMORRHAGE [None]
  - URINARY INCONTINENCE [None]
